FAERS Safety Report 7315840-9 (Version None)
Quarter: 2011Q1

REPORT INFORMATION
  Report Type: 
  Country: None (occurrence: None)
  Receive Date: 20110225
  Receipt Date: 20110211
  Transmission Date: 20110831
  Serious: Yes (Hospitalization, Other)
  Sender: FDA-Public Use
  Company Number: US-BAYER-2011-003978

PATIENT
  Sex: Male

DRUGS (2)
  1. INTERFERON BETA-1B [Suspect]
     Indication: MULTIPLE SCLEROSIS
     Dosage: UNK
     Route: 058
     Dates: start: 20040112, end: 20040706
  2. INTERFERON BETA-1B [Suspect]
     Dosage: 8 MIU, QOD
     Route: 058
     Dates: start: 20040824

REACTIONS (8)
  - GAIT DISTURBANCE [None]
  - SUBCLAVIAN VEIN THROMBOSIS [None]
  - INJECTION SITE ERYTHEMA [None]
  - VESSEL PUNCTURE SITE PAIN [None]
  - CHEST PAIN [None]
  - INJECTION SITE WARMTH [None]
  - INJECTION SITE INDURATION [None]
  - INJECTION SITE PAIN [None]
